FAERS Safety Report 12573022 (Version 2)
Quarter: 2016Q3

REPORT INFORMATION
  Report Type: Spontaneous
  Country: US (occurrence: US)
  Receive Date: 20160720
  Receipt Date: 20160725
  Transmission Date: 20161109
  Serious: Yes (Other)
  Sender: FDA-Public Use
  Company Number: US-AMGEN-USASP2016091068

PATIENT
  Age: 61 Year
  Sex: Female

DRUGS (8)
  1. LYRICA [Concomitant]
     Active Substance: PREGABALIN
     Indication: PSORIATIC ARTHROPATHY
     Dosage: 10 MG, BID
  2. TRAMADOL. [Concomitant]
     Active Substance: TRAMADOL
     Dosage: UNK
     Dates: start: 2011
  3. SYNVISC [Concomitant]
     Active Substance: HYALURONATE SODIUM
     Dosage: ONCE A YEAR
  4. DIAZEPAM. [Concomitant]
     Active Substance: DIAZEPAM
     Dosage: UNK
     Dates: start: 2008
  5. GABAPENTIN. [Concomitant]
     Active Substance: GABAPENTIN
  6. TALC [Concomitant]
     Active Substance: TALC
     Dosage: UNK
  7. TYLENOL [Concomitant]
     Active Substance: ACETAMINOPHEN
     Dosage: UNK
     Dates: start: 2006
  8. ENBREL [Suspect]
     Active Substance: ETANERCEPT
     Indication: PRODUCT USED FOR UNKNOWN INDICATION
     Dosage: UNK
     Route: 065
     Dates: start: 200408

REACTIONS (13)
  - Lung disorder [Unknown]
  - Rubber sensitivity [Unknown]
  - Gait disturbance [Unknown]
  - Diabetes mellitus [Unknown]
  - Immune system disorder [Unknown]
  - Arthralgia [Unknown]
  - Mobility decreased [Unknown]
  - Disability [Unknown]
  - Pneumonia bacterial [Unknown]
  - Cardiac disorder [Unknown]
  - Hypertension [Unknown]
  - Unevaluable event [Unknown]
  - Malaise [Unknown]
